FAERS Safety Report 8305119-0 (Version None)
Quarter: 2012Q2

REPORT INFORMATION
  Report Type: 
  Country: None (occurrence: None)
  Receive Date: 20120416
  Receipt Date: 20120404
  Transmission Date: 20120825
  Serious: Yes (Hospitalization)
  Sender: FDA-Public Use
  Company Number: AEUSA201200200

PATIENT
  Age: 60 Year
  Sex: Male

DRUGS (4)
  1. IMMUNE GLOBULIN (HUMAN) [Suspect]
     Indication: GUILLAIN-BARRE SYNDROME
     Dosage: 5 GM;QD;IV
     Route: 042
     Dates: start: 20120228, end: 20120303
  2. GAMUNEX [Suspect]
     Indication: GUILLAIN-BARRE SYNDROME
     Dosage: 40 GM;QD;IV
     Route: 042
     Dates: start: 20120228, end: 20120303
  3. TORADOL [Concomitant]
  4. GABAPENTIN [Concomitant]

REACTIONS (4)
  - NEUROLOGICAL SYMPTOM [None]
  - HAEMOLYTIC ANAEMIA [None]
  - WHITE BLOOD CELL COUNT INCREASED [None]
  - URINARY TRACT INFECTION [None]
